FAERS Safety Report 9184438 (Version 1)
Quarter: 2012Q4

REPORT INFORMATION
  Report Type: 
  Country: CH (occurrence: CH)
  Receive Date: 20121031
  Receipt Date: 20121031
  Transmission Date: 20130627
  Serious: Yes (Hospitalization, Other)
  Sender: FDA-Public Use
  Company Number: CH-009507513-1210CHE012192

PATIENT
  Age: 61 Year
  Sex: Male

DRUGS (3)
  1. REMERON [Suspect]
     Dosage: 900 mg, qd, 30 DF once
     Route: 048
     Dates: start: 20120222, end: 20120222
  2. NALOXONE HYDROCHLORIDE (+) OXYCODONE HYDROCHLORIDE [Concomitant]
     Dosage: 100/50 mg, 10 DF, Once
     Route: 048
     Dates: start: 20120222, end: 20120222
  3. DICLOFENAC [Concomitant]
     Dosage: 1350 mg, 9 DF Once
     Route: 048
     Dates: start: 20120222, end: 20120222

REACTIONS (3)
  - Respiratory failure [Recovered/Resolved]
  - Somnolence [Recovered/Resolved]
  - Suicide attempt [Recovered/Resolved]
